FAERS Safety Report 8582472-4 (Version None)
Quarter: 2012Q3

REPORT INFORMATION
  Report Type: 
  Country: None (occurrence: None)
  Receive Date: 20120809
  Receipt Date: 20120731
  Transmission Date: 20120928
  Serious: Yes (Other)
  Sender: FDA-Public Use
  Company Number: DE-JNJFOC-20120714223

PATIENT
  Age: 79 Year
  Sex: Female
  Weight: 61.3 kg

DRUGS (10)
  1. FOLIC ACID [Concomitant]
     Indication: RHEUMATOID ARTHRITIS
     Route: 048
     Dates: start: 19980101
  2. ACTONEL [Concomitant]
     Indication: OSTEOPOROSIS
     Route: 065
  3. AMLODIPINE [Concomitant]
     Indication: HYPERTENSION
     Route: 048
     Dates: start: 20060101
  4. REMICADE [Suspect]
     Indication: POLYARTHRITIS
     Dosage: PER 6-8 WEEKS AND TOTAL DOSE 13000MG
     Route: 042
     Dates: start: 20011002, end: 20120410
  5. METHOTREXATE [Concomitant]
     Indication: RHEUMATOID ARTHRITIS
     Route: 048
     Dates: start: 19980101
  6. REMICADE [Suspect]
     Indication: RHEUMATOID ARTHRITIS
     Dosage: PER 6-8 WEEKS AND TOTAL DOSE 13000MG
     Route: 042
     Dates: start: 20011002, end: 20120410
  7. METHOTREXATE [Concomitant]
     Route: 058
     Dates: start: 20030101
  8. RAMIPRIL [Concomitant]
     Indication: HYPERTENSION
     Dosage: 2.5 MG
     Route: 048
     Dates: start: 20060101
  9. PREDNISONE TAB [Concomitant]
     Indication: RHEUMATOID ARTHRITIS
     Route: 048
     Dates: start: 19980101
  10. BISOPROLOL FUMARATE AND HYDROCHLOROTHIAZIDE [Concomitant]
     Indication: HYPERTENSION
     Dosage: 2.5/6.5 MG
     Route: 048
     Dates: start: 20040101

REACTIONS (2)
  - SQUAMOUS CELL CARCINOMA [None]
  - NEOPLASM SKIN [None]
